FAERS Safety Report 20412675 (Version 1)
Quarter: 2022Q1

REPORT INFORMATION
  Report Type: Spontaneous
  Country: NL (occurrence: NL)
  Receive Date: 20220201
  Receipt Date: 20220201
  Transmission Date: 20220423
  Serious: Yes (Hospitalization, Other)
  Sender: FDA-Public Use
  Company Number: NL-PFIZER INC-202200057019

PATIENT
  Age: 56 Year
  Sex: Female

DRUGS (10)
  1. LOPINAVIR\RITONAVIR [Interacting]
     Active Substance: LOPINAVIR\RITONAVIR
     Indication: HIV infection
     Dosage: 800 MG/200 MG, DAILY
     Route: 048
     Dates: start: 2000, end: 2020
  2. PACLITAXEL [Interacting]
     Active Substance: PACLITAXEL
     Indication: HER2 positive breast cancer
     Route: 065
     Dates: start: 2020, end: 2020
  3. PACLITAXEL [Interacting]
     Active Substance: PACLITAXEL
     Dosage: 75% OF THE ORIGINAL PACLITAXEL DOSE (CYCLE 2)
     Route: 065
     Dates: start: 2020, end: 2020
  4. PACLITAXEL [Interacting]
     Active Substance: PACLITAXEL
     Dosage: 50% PACLITAXEL DOSE REDUCTION (3RD CYCLE)
     Route: 065
     Dates: start: 2020, end: 2020
  5. PACLITAXEL [Interacting]
     Active Substance: PACLITAXEL
     Dosage: FOURTH CYCLE AT 50%,
     Route: 065
     Dates: start: 2020, end: 2020
  6. PACLITAXEL [Interacting]
     Active Substance: PACLITAXEL
     Dosage: FIFTH CYCLE AT 60% OF THE ORIGINAL DOSE
     Route: 065
     Dates: start: 2020, end: 2020
  7. PACLITAXEL [Interacting]
     Active Substance: PACLITAXEL
     Dosage: SIXTH CYCLE AT 60% OF THE ORIGINAL DOSE
     Route: 065
     Dates: start: 2020, end: 2020
  8. LAMIVUDINE [Concomitant]
     Active Substance: LAMIVUDINE
     Indication: HIV infection
  9. PERTUZUMAB [Concomitant]
     Active Substance: PERTUZUMAB
     Indication: HER2 positive breast cancer
     Dosage: 420, 840 MG LOADING DOSE, EVERY 3 WEEKS
     Dates: start: 2020
  10. TRASTUZUMAB [Concomitant]
     Active Substance: TRASTUZUMAB
     Indication: HER2 positive breast cancer
     Dosage: 6, 8 MG/KG, LOADING DOSE, EVERY 3 WEEKS
     Dates: start: 2020

REACTIONS (2)
  - Pancytopenia [Recovered/Resolved]
  - Drug interaction [Unknown]

NARRATIVE: CASE EVENT DATE: 20200101
